FAERS Safety Report 7694291-1 (Version None)
Quarter: 2011Q3

REPORT INFORMATION
  Report Type: 
  Country: None (occurrence: None)
  Receive Date: 20110819
  Receipt Date: 20110816
  Transmission Date: 20111222
  Serious: Yes (Other)
  Sender: FDA-Public Use
  Company Number: DE-GLAXOSMITHKLINE-D0072411A

PATIENT
  Age: 29 Year
  Sex: Male

DRUGS (1)
  1. VIANI [Suspect]
     Route: 055
     Dates: start: 20110601

REACTIONS (2)
  - SWELLING FACE [None]
  - MUSCLE ATROPHY [None]
